FAERS Safety Report 16921754 (Version 2)
Quarter: 2020Q4

REPORT INFORMATION
  Report Type: Report from Study
  Country: BR (occurrence: BR)
  Receive Date: 20191015
  Receipt Date: 20201001
  Transmission Date: 20210113
  Serious: Yes (Hospitalization, Other)
  Sender: FDA-Public Use
  Company Number: BR-SHIRE-BR201932688

PATIENT

DRUGS (4)
  1. NOVOSEVEN [Concomitant]
     Active Substance: COAGULATION FACTOR VIIA RECOMBINANT HUMAN
     Indication: INHIBITORY DRUG INTERACTION
  2. FEIBA NF [Suspect]
     Active Substance: ANTI-INHIBITOR COAGULANT COMPLEX
     Indication: HAEMOPHILIA B WITH ANTI FACTOR IX
     Dosage: UNK UNK, 3X A WEEK, MONDAYS, WEDNESDAYS AND FRIDAYS
     Route: 050
  3. FEIBA NF [Suspect]
     Active Substance: ANTI-INHIBITOR COAGULANT COMPLEX
     Indication: FACTOR VIII DEFICIENCY
     Dosage: UNK UNK, 2X A WEEK
     Route: 050
  4. FEIBA NF [Suspect]
     Active Substance: ANTI-INHIBITOR COAGULANT COMPLEX
     Indication: INHIBITORY DRUG INTERACTION
     Dosage: 6000 INTERNATIONAL UNIT, 3X A WEEK
     Route: 065
     Dates: start: 20191002, end: 20200823

REACTIONS (9)
  - Arthralgia [Recovering/Resolving]
  - Swelling [Unknown]
  - Weight increased [Unknown]
  - Headache [Unknown]
  - Contusion [Unknown]
  - Skin discolouration [Unknown]
  - Haemorrhage [Unknown]
  - Fatigue [Unknown]
  - Movement disorder [Unknown]
